FAERS Safety Report 4777765-2 (Version None)
Quarter: 2005Q3

REPORT INFORMATION
  Report Type: 
  Country: None (occurrence: None)
  Receive Date: 20050922
  Receipt Date: 20050907
  Transmission Date: 20060218
  Serious: Yes (Hospitalization)
  Sender: FDA-Public Use
  Company Number: 005589

PATIENT
  Age: 68 Year
  Sex: Female
  Weight: 54 kg

DRUGS (7)
  1. METHOTREXATE [Suspect]
     Indication: PSORIATIC ARTHROPATHY
     Dosage: 8.00 TABLET, 1/WEEK, ORAL
     Route: 048
     Dates: start: 20050721, end: 20050729
  2. METHOTREXATE [Suspect]
     Indication: PSORIATIC ARTHROPATHY
     Dosage: 8.0 TABLET, 1/WEEK, ORAL
     Route: 048
     Dates: start: 20050804
  3. SYNTHROID [Concomitant]
  4. NEXIUM [Concomitant]
  5. ZOCOR [Concomitant]
  6. ZETIA [Concomitant]
  7. HYDROCHLORZIDE [Concomitant]

REACTIONS (6)
  - ARTHRITIS [None]
  - DRUG INEFFECTIVE [None]
  - JOINT EFFUSION [None]
  - PHARMACEUTICAL PRODUCT COMPLAINT [None]
  - PSORIATIC ARTHROPATHY [None]
  - PYREXIA [None]
